FAERS Safety Report 24087867 (Version 1)
Quarter: 2024Q3

REPORT INFORMATION
  Report Type: Report from Study
  Country: US (occurrence: US)
  Receive Date: 20240715
  Receipt Date: 20240715
  Transmission Date: 20241017
  Serious: Yes (Other)
  Sender: ABBVIE
  Company Number: US-ABBVIE-5838331

PATIENT
  Sex: Female

DRUGS (1)
  1. LINZESS [Suspect]
     Active Substance: LINACLOTIDE
     Indication: Constipation
     Dosage: STRENGTH 290
     Route: 048
     Dates: start: 2019, end: 20240408

REACTIONS (2)
  - Surgery [Unknown]
  - Constipation [Unknown]

NARRATIVE: CASE EVENT DATE: 20240101
